FAERS Safety Report 7501960-2 (Version None)
Quarter: 2011Q2

REPORT INFORMATION
  Report Type: 
  Country: None (occurrence: None)
  Receive Date: 20110525
  Receipt Date: 20110520
  Transmission Date: 20111010
  Serious: No
  Sender: FDA-Public Use
  Company Number: US-PFIZER INC-2011109999

PATIENT
  Sex: Female

DRUGS (2)
  1. EFFEXOR [Suspect]
     Indication: ANXIETY
     Dosage: UNK
  2. CYMBALTA [Suspect]
     Dosage: UNK

REACTIONS (3)
  - SOMNOLENCE [None]
  - NIGHTMARE [None]
  - FEELING ABNORMAL [None]
